FAERS Safety Report 8201227-3 (Version None)
Quarter: 2012Q1

REPORT INFORMATION
  Report Type: 
  Country: None (occurrence: None)
  Receive Date: 20120312
  Receipt Date: 20120306
  Transmission Date: 20120608
  Serious: Yes (Hospitalization, Disabling, Other)
  Sender: FDA-Public Use
  Company Number: PHHO2011CO03841

PATIENT
  Sex: Male
  Weight: 70 kg

DRUGS (6)
  1. HYDROMORPHONE HCL [Concomitant]
  2. EVEROLIMUS [Suspect]
     Indication: DIFFUSE LARGE B-CELL LYMPHOMA
     Dosage: UNK
     Route: 048
     Dates: start: 20101222, end: 20110312
  3. ANTHRACYCLINES [Suspect]
  4. METFORMIN HCL [Concomitant]
     Indication: DIABETES MELLITUS
  5. DOXORUBICIN HCL [Suspect]
  6. PIPERACILLIN [Concomitant]

REACTIONS (15)
  - DEEP VEIN THROMBOSIS [None]
  - SKIN ULCER [None]
  - INFECTION [None]
  - FATIGUE [None]
  - CONGESTIVE CARDIOMYOPATHY [None]
  - OEDEMA PERIPHERAL [None]
  - DIZZINESS [None]
  - CHOKING [None]
  - PAIN IN EXTREMITY [None]
  - CONCOMITANT DISEASE PROGRESSION [None]
  - LYMPHOPENIA [None]
  - DIABETES MELLITUS [None]
  - GAMMA-GLUTAMYLTRANSFERASE INCREASED [None]
  - CD4 LYMPHOCYTES INCREASED [None]
  - PYREXIA [None]
